FAERS Safety Report 6109182-7 (Version None)
Quarter: 2009Q1

REPORT INFORMATION
  Report Type: 
  Country: None (occurrence: None)
  Receive Date: 20090310
  Receipt Date: 20090227
  Transmission Date: 20090719
  Serious: Yes (Other)
  Sender: FDA-Public Use
  Company Number: SK-NOVOPROD-283996

PATIENT
  Sex: Female
  Weight: 1.02 kg

DRUGS (2)
  1. NOVORAPID [Suspect]
     Indication: GESTATIONAL DIABETES
     Dosage: 4 U, QD
     Route: 064
     Dates: start: 20081103
  2. LEVEMIR [Suspect]
     Indication: GESTATIONAL DIABETES
     Dosage: 4 IU, QD
     Route: 064
     Dates: start: 20081103

REACTIONS (1)
  - PREMATURE BABY [None]
